FAERS Safety Report 9029186 (Version 1)
Quarter: 2013Q1

REPORT INFORMATION
  Report Type: Spontaneous
  Country: US (occurrence: US)
  Receive Date: 20130125
  Receipt Date: 20130125
  Transmission Date: 20140127
  Serious: Yes (Hospitalization)
  Sender: FDA-Public Use
  Company Number: US-JNJFOC-20130109088

PATIENT
  Sex: Female
  Weight: 88.91 kg

DRUGS (2)
  1. EXTRA STRENGTH TYLENOL [Suspect]
     Indication: ARTHRITIS
     Dosage: 2 DOSES AS NEEDED
     Route: 048
  2. ALEVE [Concomitant]

REACTIONS (3)
  - Endometrial cancer [Unknown]
  - Atrial fibrillation [Not Recovered/Not Resolved]
  - Drug ineffective [Not Recovered/Not Resolved]
